FAERS Safety Report 4589660-2 (Version None)
Quarter: 2005Q1

REPORT INFORMATION
  Report Type: 
  Country: None (occurrence: None)
  Receive Date: 20050217
  Receipt Date: 20050201
  Transmission Date: 20050727
  Serious: Yes (Other)
  Sender: FDA-Public Use
  Company Number: 2005EU000204

PATIENT
  Sex: Female

DRUGS (11)
  1. PROGRAF [Suspect]
     Indication: RENAL TRANSPLANT
     Dosage: SEE IMAGE
     Route: 048
     Dates: start: 20010101, end: 20030301
  2. PROGRAF [Suspect]
     Indication: RENAL TRANSPLANT
     Dosage: SEE IMAGE
     Route: 048
     Dates: start: 20030401
  3. PREDNISOLONE [Concomitant]
  4. CELLCEPT [Concomitant]
  5. ISOPTIN [Concomitant]
  6. VERAHEXAL (VERAPAMIL HYDROCHLORIDE) [Concomitant]
  7. XANEF (ENALAPRIL MALEATE) [Concomitant]
  8. CLONIDINE [Concomitant]
  9. ACETYLSALICYLIC ACID SRT [Concomitant]
  10. JODID (POTASSIUM IODIDE) [Concomitant]
  11. L-THYROXINE (LEVOTHYROXINE) [Concomitant]

REACTIONS (2)
  - GOITRE [None]
  - HYPOTHYROIDISM [None]
